FAERS Safety Report 9095986 (Version 2)
Quarter: 2013Q1

REPORT INFORMATION
  Report Type: Spontaneous
  Country: US (occurrence: US)
  Receive Date: 20130207
  Receipt Date: 20130328
  Transmission Date: 20140127
  Serious: Yes (Other)
  Sender: FDA-Public Use
  Company Number: US-JNJFOC-20130117004

PATIENT
  Age: 65 Year
  Sex: Male
  Weight: 86.18 kg

DRUGS (8)
  1. REMICADE [Suspect]
     Indication: COLITIS ULCERATIVE
     Route: 042
     Dates: start: 20121228, end: 20121228
  2. LISINOPRIL [Concomitant]
     Indication: HYPERTENSION
     Route: 065
  3. HCTZ [Concomitant]
     Indication: HYPERTENSION
     Route: 065
  4. ATENOLOL [Concomitant]
     Indication: HYPERTENSION
     Route: 065
  5. NORVASC [Concomitant]
     Indication: HYPERTENSION
     Route: 065
  6. PREDNISONE [Concomitant]
     Indication: COLITIS ULCERATIVE
     Route: 065
     Dates: start: 20121225
  7. ACETAMINOPHEN [Concomitant]
     Indication: PREMEDICATION
     Route: 065
     Dates: start: 20121228
  8. BENADRYL [Concomitant]
     Indication: PREMEDICATION
     Route: 065
     Dates: start: 20121228

REACTIONS (6)
  - Paraesthesia [Recovering/Resolving]
  - Hypersensitivity [Recovered/Resolved]
  - Infusion related reaction [Recovered/Resolved]
  - VIIth nerve paralysis [Recovered/Resolved]
  - Body temperature increased [Recovered/Resolved]
  - Abdominal distension [Not Recovered/Not Resolved]
